FAERS Safety Report 15250159 (Version 1)
Quarter: 2018Q3

REPORT INFORMATION
  Report Type: Report from Study
  Country: AT (occurrence: AT)
  Receive Date: 20180807
  Receipt Date: 20180807
  Transmission Date: 20181010
  Serious: Yes (Death, Hospitalization)
  Sender: FDA-Public Use
  Company Number: AT-MYLANLABS-2018M1059119

PATIENT
  Age: 86 Year
  Sex: Female

DRUGS (1)
  1. METHOTREXATE. [Suspect]
     Active Substance: METHOTREXATE
     Indication: PRODUCT USED FOR UNKNOWN INDICATION
     Dosage: RECEIVED THE DOSE INSTEAD OF 2.5 MG/WEEK
     Route: 048

REACTIONS (10)
  - Pyrexia [Unknown]
  - Overdose [Fatal]
  - Nausea [Unknown]
  - Bone marrow failure [Fatal]
  - Renal failure [Unknown]
  - Pancytopenia [Unknown]
  - Vertigo [Unknown]
  - Hepatic enzyme increased [Unknown]
  - Sepsis [Fatal]
  - Drug administration error [Fatal]
